FAERS Safety Report 12154978 (Version 1)
Quarter: 2016Q1

REPORT INFORMATION
  Report Type: Spontaneous
  Country: US (occurrence: US)
  Receive Date: 20160307
  Receipt Date: 20160307
  Transmission Date: 20160526
  Serious: No
  Sender: FDA-Public Use
  Company Number: US-BAYER-2016-041326

PATIENT
  Age: 91 Year
  Sex: Female
  Weight: 70.3 kg

DRUGS (1)
  1. MIRALAX [Suspect]
     Active Substance: POLYETHYLENE GLYCOL 3350
     Indication: CONSTIPATION
     Dosage: UNK
     Route: 048
     Dates: start: 2015, end: 2015

REACTIONS (5)
  - Muscle spasms [None]
  - Diarrhoea [None]
  - Product use issue [None]
  - Flatulence [None]
  - Product use issue [None]

NARRATIVE: CASE EVENT DATE: 2015
